FAERS Safety Report 6724397-2 (Version None)
Quarter: 2010Q2

REPORT INFORMATION
  Report Type: 
  Country: None (occurrence: None)
  Receive Date: 20100513
  Receipt Date: 20100506
  Transmission Date: 20101027
  Serious: Yes (Hospitalization)
  Sender: FDA-Public Use
  Company Number: PHHO2010DE06864

PATIENT
  Sex: Male

DRUGS (5)
  1. MYFORTIC [Suspect]
     Indication: RENAL TRANSPLANT
     Dosage: 1440MG, DAILY
     Route: 048
     Dates: end: 20091106
  2. MYFORTIC [Suspect]
     Dosage: 1440MG, DAILY
     Route: 048
     Dates: start: 20091203
  3. NO TREATMENT RECEIVED NOMED [Suspect]
     Indication: RENAL TRANSPLANT
     Dosage: UNK
  4. SANDIMMUNE [Concomitant]
     Indication: RENAL TRANSPLANT
     Dosage: 200MG, DAILY
     Route: 048
  5. PREDNISONE [Concomitant]
     Indication: RENAL TRANSPLANT
     Dosage: 15MG, DAILY
     Route: 048

REACTIONS (2)
  - IMPAIRED HEALING [None]
  - WOUND TREATMENT [None]
